FAERS Safety Report 17452761 (Version 4)
Quarter: 2021Q2

REPORT INFORMATION
  Report Type: Spontaneous
  Country: JP (occurrence: JP)
  Receive Date: 20200224
  Receipt Date: 20210503
  Transmission Date: 20210716
  Serious: Yes (Life-Threatening, Other)
  Sender: FDA-Public Use
  Company Number: JP-ASTRAZENECA-2019SF68738

PATIENT
  Age: 851 Month
  Sex: Male
  Weight: 44 kg

DRUGS (4)
  1. TAGRISSO [Suspect]
     Active Substance: OSIMERTINIB
     Indication: NON-SMALL CELL LUNG CANCER
     Route: 048
     Dates: start: 20190712, end: 20191104
  2. MIYA?BM [Concomitant]
     Active Substance: CLOSTRIDIUM BUTYRICUM SPORES STRAIN M-55
     Indication: DIARRHOEA
     Dosage: THREE TIMES A DAY
     Route: 048
     Dates: start: 20190919
  3. HARNAL [Concomitant]
     Active Substance: TAMSULOSIN HYDROCHLORIDE
     Indication: BENIGN PROSTATIC HYPERPLASIA
     Route: 048
     Dates: start: 20190801
  4. MEDICON [DEXTROMETHORPHAN HYDROBROMIDE] [Concomitant]
     Active Substance: DEXTROMETHORPHAN HYDROBROMIDE
     Indication: COUGH
     Route: 048
     Dates: start: 20190919

REACTIONS (14)
  - Jugular vein thrombosis [Unknown]
  - Urinary tract infection [Unknown]
  - Steroid diabetes [Unknown]
  - Pulmonary congestion [Unknown]
  - Right atrial enlargement [Unknown]
  - Pneumonia bacterial [Unknown]
  - Lung disorder [Recovered/Resolved]
  - Hypoxia [Recovering/Resolving]
  - Right ventricular enlargement [Unknown]
  - Pulmonary alveolar haemorrhage [Recovered/Resolved]
  - Pleural effusion [Recovering/Resolving]
  - C-reactive protein increased [Recovering/Resolving]
  - Peripheral circulatory failure [Unknown]
  - Decreased appetite [Unknown]

NARRATIVE: CASE EVENT DATE: 201910
